FAERS Safety Report 10543746 (Version 1)
Quarter: 2014Q4

REPORT INFORMATION
  Report Type: Spontaneous
  Country: US (occurrence: None)
  Receive Date: 20141010
  Receipt Date: 20141010
  Transmission Date: 20150529
  Serious: No
  Sender: FDA-Public Use
  Company Number: 163-POMAL-14070079

PATIENT
  Sex: Male

DRUGS (13)
  1. CARFILZOMIB (CARFILZOMIB) [Concomitant]
  2. SENOKOT (SENNA FRUIT) [Concomitant]
  3. ZOLENDRONIC ACID (ZOLENDRONIC ACID) [Concomitant]
  4. DOCUSATE (DOCUSATE) [Concomitant]
     Active Substance: DOCUSATE
  5. POMALYST [Suspect]
     Active Substance: POMALIDOMIDE
     Indication: PLASMA CELL MYELOMA
     Dosage: 21 IN 28 D
     Route: 048
     Dates: start: 20140428
  6. PREGABALIN (PREGABALIN) [Concomitant]
     Active Substance: PREGABALIN
  7. METOPROLOL (METOPROLOL) [Concomitant]
     Active Substance: METOPROLOL
  8. OXYCODONE (OXYCODONE) [Concomitant]
     Active Substance: OXYCODONE
  9. LACTULOSE (LACTULOSE) [Concomitant]
     Active Substance: LACTULOSE
  10. LISINOPRIL (LISINOPRIL) [Concomitant]
     Active Substance: LISINOPRIL
  11. CALCIUM (CALCIUM) [Concomitant]
     Active Substance: CALCIUM
  12. ACETAMINOPHEN (PARACETAMOL) [Concomitant]
     Active Substance: ACETAMINOPHEN
  13. DEXAMETHASONE (DEXAMETHASONE) [Concomitant]
     Active Substance: DEXAMETHASONE

REACTIONS (1)
  - Light chain analysis abnormal [None]
